FAERS Safety Report 7088950-1 (Version None)
Quarter: 2010Q4

REPORT INFORMATION
  Report Type: 
  Country: None (occurrence: None)
  Receive Date: 20101029
  Receipt Date: 20101018
  Transmission Date: 20110411
  Serious: Yes (Disabling)
  Sender: FDA-Public Use
  Company Number: OSCN-NO-0912S-0531

PATIENT
  Age: 58 Year
  Sex: Male
  Weight: 73 kg

DRUGS (2)
  1. OMNISCAN [Suspect]
     Indication: RENAL TRANSPLANT
     Dosage: 50 ML, SINGLE DOSE, I.V.
     Route: 042
     Dates: start: 20020607, end: 20020607
  2. MEGLUMINE GADOTERATE (DOTAREM) [Concomitant]

REACTIONS (11)
  - FATIGUE [None]
  - HYPERKERATOSIS [None]
  - HYPERSOMNIA [None]
  - JOINT STIFFNESS [None]
  - MOBILITY DECREASED [None]
  - MUSCLE CONTRACTURE [None]
  - NEPHROGENIC SYSTEMIC FIBROSIS [None]
  - PRURITUS [None]
  - RASH [None]
  - SKIN HYPERPIGMENTATION [None]
  - SKIN HYPERTROPHY [None]
